FAERS Safety Report 25646031 (Version 1)
Quarter: 2025Q3

REPORT INFORMATION
  Report Type: Spontaneous
  Country: EU (occurrence: EU)
  Receive Date: 20250805
  Receipt Date: 20250805
  Transmission Date: 20251020
  Serious: Yes (Other)
  Sender: BRISTOL-MYERS SQUIBB COMPANY
  Company Number: None

PATIENT
  Age: 76 Year
  Sex: Female

DRUGS (1)
  1. OPDIVO [Suspect]
     Active Substance: NIVOLUMAB
     Indication: Malignant melanoma
     Route: 042
     Dates: start: 20250122, end: 20250416

REACTIONS (2)
  - Immune-mediated arthritis [Recovered/Resolved]
  - Immune-mediated cholestasis [Recovered/Resolved]

NARRATIVE: CASE EVENT DATE: 20250401
